FAERS Safety Report 4301593-5 (Version None)
Quarter: 2004Q1

REPORT INFORMATION
  Report Type: 
  Country: None (occurrence: None)
  Receive Date: 20040219
  Receipt Date: 20040210
  Transmission Date: 20041129
  Serious: Yes (Other)
  Sender: FDA-Public Use
  Company Number: GB-JNJFOC-20040202223

PATIENT
  Age: 58 Year
  Sex: Female

DRUGS (2)
  1. TRAMADOL HCL [Suspect]
     Indication: BACK PAIN
     Dosage: 50 MG, 1 IN 1 TOTAL, ORAL
     Route: 048
     Dates: start: 20040116, end: 20040116
  2. PARACETAMOL (PARACETAMOL) [Concomitant]

REACTIONS (2)
  - CIRCULATORY COLLAPSE [None]
  - HEADACHE [None]
